FAERS Safety Report 14419569 (Version 1)
Quarter: 2018Q1

REPORT INFORMATION
  Report Type: Report from Study
  Country: US (occurrence: US)
  Receive Date: 20180122
  Receipt Date: 20180122
  Transmission Date: 20180509
  Serious: Yes (Hospitalization, Other)
  Sender: FDA-Public Use
  Company Number: US-BAYER-2017-193838

PATIENT
  Age: 55 Year
  Sex: Male

DRUGS (1)
  1. NEXAVAR [Suspect]
     Active Substance: SORAFENIB
     Indication: HEPATOCELLULAR CARCINOMA
     Dosage: 400 MG, BID
     Route: 048
     Dates: start: 20170905

REACTIONS (6)
  - Hospitalisation [None]
  - Weight decreased [None]
  - Hypophagia [None]
  - Fatigue [None]
  - Fatigue [Recovering/Resolving]
  - Decreased appetite [None]

NARRATIVE: CASE EVENT DATE: 20171230
